FAERS Safety Report 6596838-5 (Version None)
Quarter: 2010Q1

REPORT INFORMATION
  Report Type: 
  Country: None (occurrence: None)
  Receive Date: 20100212
  Receipt Date: 20090807
  Transmission Date: 20100710
  Serious: No
  Sender: FDA-Public Use
  Company Number: 2009-00552

PATIENT
  Age: 71 Year
  Sex: Female
  Weight: 95.709 kg

DRUGS (4)
  1. ZICAM COLD REMEDY NASAL GEL [Suspect]
     Dosage: LAST FW YRS-RECENT
  2. ZICAM EXTREME CONGESTION RELIEF [Suspect]
     Dosage: YRS AGO-RECENT
  3. OTC VITAMINS [Concomitant]
  4. SUPPLEMENTS [Concomitant]

REACTIONS (1)
  - ANOSMIA [None]
